FAERS Safety Report 19615067 (Version 1)
Quarter: 2021Q3

REPORT INFORMATION
  Report Type: Report from Study
  Country: FR (occurrence: FR)
  Receive Date: 20210727
  Receipt Date: 20210727
  Transmission Date: 20211014
  Serious: Yes (Hospitalization)
  Sender: FDA-Public Use
  Company Number: FR-TAKEDA-2021TUS046705

PATIENT
  Age: 69 Year
  Sex: Female

DRUGS (20)
  1. TEDUGLUTIDE [Suspect]
     Active Substance: TEDUGLUTIDE
     Indication: PRODUCT USED FOR UNKNOWN INDICATION
     Dosage: 2.45 MILLIGRAM, QD
     Route: 065
     Dates: start: 20180328, end: 20181114
  2. TEDUGLUTIDE [Suspect]
     Active Substance: TEDUGLUTIDE
     Indication: PRODUCT USED FOR UNKNOWN INDICATION
     Dosage: 2.45 MILLIGRAM, QD
     Route: 065
     Dates: start: 20180328, end: 20181114
  3. TEDUGLUTIDE [Suspect]
     Active Substance: TEDUGLUTIDE
     Dosage: 2.02 MILLIGRAM, QD
     Route: 065
     Dates: start: 20181114, end: 20190922
  4. PERINDOPRIL [Concomitant]
     Active Substance: PERINDOPRIL
     Indication: HYPERTENSION
     Dosage: 25 MILLIGRAM, QD
     Route: 048
  5. TEDUGLUTIDE [Suspect]
     Active Substance: TEDUGLUTIDE
     Indication: PRODUCT USED FOR UNKNOWN INDICATION
     Dosage: 2.45 MILLIGRAM, QD
     Route: 065
     Dates: start: 20180328, end: 20181114
  6. TEDUGLUTIDE [Suspect]
     Active Substance: TEDUGLUTIDE
     Dosage: 2.02 MILLIGRAM, QD
     Route: 065
     Dates: start: 20181114, end: 20190922
  7. TEDUGLUTIDE [Suspect]
     Active Substance: TEDUGLUTIDE
     Dosage: 2.2 MILLIGRAM, QD
     Route: 065
     Dates: start: 20201124
  8. ORACILLINE [Concomitant]
     Active Substance: PENICILLIN V
     Indication: SPLENECTOMY
     Dosage: 1000000 INTERNATIONAL UNIT, BID
     Route: 048
     Dates: start: 20170111, end: 20210105
  9. TEDUGLUTIDE [Suspect]
     Active Substance: TEDUGLUTIDE
     Indication: PRODUCT USED FOR UNKNOWN INDICATION
     Dosage: 2.45 MILLIGRAM, QD
     Route: 065
     Dates: start: 20180328, end: 20181114
  10. TEDUGLUTIDE [Suspect]
     Active Substance: TEDUGLUTIDE
     Dosage: 2.02 MILLIGRAM, QD
     Route: 065
     Dates: start: 20181114, end: 20190922
  11. TEDUGLUTIDE [Suspect]
     Active Substance: TEDUGLUTIDE
     Dosage: 2.04 MILLIGRAM, QD
     Route: 065
     Dates: start: 20190923, end: 20201124
  12. TEDUGLUTIDE [Suspect]
     Active Substance: TEDUGLUTIDE
     Dosage: 2.04 MILLIGRAM, QD
     Route: 065
     Dates: start: 20190923, end: 20201124
  13. TEDUGLUTIDE [Suspect]
     Active Substance: TEDUGLUTIDE
     Dosage: 2.2 MILLIGRAM, QD
     Route: 065
     Dates: start: 20201124
  14. TEDUGLUTIDE [Suspect]
     Active Substance: TEDUGLUTIDE
     Dosage: 2.2 MILLIGRAM, QD
     Route: 065
     Dates: start: 20201124
  15. URSOLVAN [Concomitant]
     Active Substance: URSODIOL
     Indication: CHOLESTASIS
     Dosage: 200 MILLIGRAM, BID
     Route: 048
     Dates: start: 201710, end: 20210209
  16. TEDUGLUTIDE [Suspect]
     Active Substance: TEDUGLUTIDE
     Dosage: 2.04 MILLIGRAM, QD
     Route: 065
     Dates: start: 20190923, end: 20201124
  17. ATORVASTATINE [Concomitant]
     Active Substance: ATORVASTATIN
     Indication: CEREBROVASCULAR ACCIDENT
     Dosage: 10 MILLIGRAM, QD
     Route: 048
     Dates: start: 2008
  18. TEDUGLUTIDE [Suspect]
     Active Substance: TEDUGLUTIDE
     Dosage: 2.02 MILLIGRAM, QD
     Route: 065
     Dates: start: 20181114, end: 20190922
  19. TEDUGLUTIDE [Suspect]
     Active Substance: TEDUGLUTIDE
     Dosage: 2.04 MILLIGRAM, QD
     Route: 065
     Dates: start: 20190923, end: 20201124
  20. TEDUGLUTIDE [Suspect]
     Active Substance: TEDUGLUTIDE
     Dosage: 2.2 MILLIGRAM, QD
     Route: 065
     Dates: start: 20201124

REACTIONS (1)
  - Campylobacter infection [Recovered/Resolved]

NARRATIVE: CASE EVENT DATE: 20210101
